FAERS Safety Report 7494803-7 (Version None)
Quarter: 2011Q2

REPORT INFORMATION
  Report Type: 
  Country: None (occurrence: None)
  Receive Date: 20110520
  Receipt Date: 20110513
  Transmission Date: 20111010
  Serious: Yes (Disabling, Other)
  Sender: FDA-Public Use
  Company Number: A0927328A

PATIENT
  Age: 19 Year
  Sex: Female

DRUGS (3)
  1. ZONEGRAN [Concomitant]
  2. LAMICTAL XR [Suspect]
     Dosage: 400MG AT NIGHT
     Route: 048
     Dates: start: 20101014
  3. ETHINYL ESTRADIOL AND NORETHINDRONE [Concomitant]

REACTIONS (4)
  - CONVULSION [None]
  - PRODUCT QUALITY ISSUE [None]
  - DRUG INEFFECTIVE [None]
  - DRUG LEVEL DECREASED [None]
